FAERS Safety Report 25666691 (Version 5)
Quarter: 2025Q4

REPORT INFORMATION
  Report Type: Spontaneous
  Country: US (occurrence: US)
  Receive Date: 20250811
  Receipt Date: 20251106
  Transmission Date: 20260117
  Serious: No
  Sender: SANOFI AVENTIS
  Company Number: US-SA-2025SA234697

PATIENT
  Age: 72 Year
  Sex: Female

DRUGS (1)
  1. DUPIXENT [Suspect]
     Active Substance: DUPILUMAB
     Indication: Asthma
     Dosage: 300 MG, QOW
     Route: 058
     Dates: start: 202506, end: 2025

REACTIONS (19)
  - Nipple pain [Recovering/Resolving]
  - Peripheral swelling [Recovering/Resolving]
  - Joint swelling [Recovering/Resolving]
  - Ear pain [Recovered/Resolved]
  - Skin discolouration [Unknown]
  - Skin swelling [Unknown]
  - Rash erythematous [Unknown]
  - Oropharyngeal pain [Recovered/Resolved]
  - Dizziness [Unknown]
  - Diarrhoea [Unknown]
  - Condition aggravated [Unknown]
  - Toothache [Unknown]
  - Mobility decreased [Unknown]
  - Sensory disturbance [Unknown]
  - Vertigo [Unknown]
  - Breast discomfort [Unknown]
  - Breast pain [Unknown]
  - Arthralgia [Unknown]
  - Vestibular migraine [Unknown]

NARRATIVE: CASE EVENT DATE: 20250101
